FAERS Safety Report 10075455 (Version 1)
Quarter: 2014Q1

REPORT INFORMATION
  Report Type: Spontaneous
  Country: DK (occurrence: None)
  Receive Date: 20140318
  Receipt Date: 20140318
  Transmission Date: 20141002
  Serious: Yes (Disabling)
  Sender: FDA-Public Use
  Company Number: DK 2010 0002

PATIENT
  Age: 34 Year
  Sex: Male

DRUGS (8)
  1. GADOLINIUM [Suspect]
     Indication: ANGIOGRAM
     Dates: start: 19980906, end: 19980906
  2. PREDNISOLON DAK [Concomitant]
  3. BURINEX (BUMETANIDE) [Concomitant]
  4. CENTYL (BENDROFLUMETHIAZIDE) [Concomitant]
  5. TACROLIMUS [Concomitant]
  6. FERRO DURETTER (FERROUS SULFATE) [Concomitant]
  7. ACTRAPID (INSULIN HUMAN) [Concomitant]
  8. INSULATARD (INSULIN HUMAN INJECTION, ISOPHANE) [Concomitant]

REACTIONS (13)
  - Nephrogenic systemic fibrosis [None]
  - Eczema [None]
  - Arthralgia [None]
  - Limb discomfort [None]
  - Myalgia [None]
  - Muscle fatigue [None]
  - Restless legs syndrome [None]
  - Paraesthesia [None]
  - Rash [None]
  - Gait disturbance [None]
  - Movement disorder [None]
  - Scleroderma [None]
  - Muscular weakness [None]
